FAERS Safety Report 24794194 (Version 1)
Quarter: 2024Q4

REPORT INFORMATION
  Report Type: Spontaneous
  Country: IT (occurrence: IT)
  Receive Date: 20241231
  Receipt Date: 20241231
  Transmission Date: 20250115
  Serious: Yes (Death, Hospitalization, Other)
  Sender: TAKEDA
  Company Number: IT-GERMAN-LIT/ITA/24/0018526

PATIENT
  Age: 52 Year
  Sex: Female

DRUGS (6)
  1. VELCADE [Suspect]
     Active Substance: BORTEZOMIB
     Indication: Plasma cell myeloma
     Dosage: UNK
  2. DEXAMETHASONE [Suspect]
     Active Substance: DEXAMETHASONE
     Indication: Plasma cell myeloma
     Dosage: UNK
  3. DARZALEX [Suspect]
     Active Substance: DARATUMUMAB
     Indication: Plasma cell myeloma
     Dosage: UNK
  4. THALIDOMIDE [Suspect]
     Active Substance: THALIDOMIDE
     Indication: Plasma cell myeloma
     Dosage: UNK
  5. TRANEXAMIC ACID [Concomitant]
     Active Substance: TRANEXAMIC ACID
     Indication: Coagulopathy
     Dosage: 1000 MILLIGRAM, TID
  6. ASPIRIN [Concomitant]
     Active Substance: ASPIRIN
     Indication: Prophylaxis
     Dosage: 100 MG/DL

REACTIONS (9)
  - Haemorrhage intracranial [Fatal]
  - Plasma cell myeloma [Unknown]
  - Acute respiratory distress syndrome [Unknown]
  - Interstitial lung disease [Unknown]
  - Cytomegalovirus infection [Unknown]
  - Cardiac failure congestive [Recovered/Resolved]
  - Drug ineffective [Unknown]
  - Hepatosplenomegaly [Unknown]
  - Coagulopathy [Unknown]
